FAERS Safety Report 14572011 (Version 1)
Quarter: 2018Q1

REPORT INFORMATION
  Report Type: Spontaneous
  Country: CN (occurrence: CN)
  Receive Date: 20180226
  Receipt Date: 20180226
  Transmission Date: 20180509
  Serious: Yes (Other)
  Sender: FDA-Public Use
  Company Number: CN-GLAXOSMITHKLINE-CN2018GSK028488

PATIENT
  Sex: Male

DRUGS (1)
  1. BACTROBAN [Suspect]
     Active Substance: MUPIROCIN\MUPIROCIN CALCIUM
     Indication: PENIS DISORDER
     Dosage: UNK

REACTIONS (2)
  - Urethral obstruction [Not Recovered/Not Resolved]
  - Product administered at inappropriate site [Unknown]
